FAERS Safety Report 23817258 (Version 2)
Quarter: 2024Q3

REPORT INFORMATION
  Report Type: Spontaneous
  Country: US (occurrence: US)
  Receive Date: 20240505
  Receipt Date: 20240807
  Transmission Date: 20241016
  Serious: No
  Sender: MERCK
  Company Number: US-009507513-2404USA010719

PATIENT
  Sex: Female

DRUGS (1)
  1. KEYTRUDA [Suspect]
     Active Substance: PEMBROLIZUMAB
     Indication: Breast cancer stage IV

REACTIONS (1)
  - Thyroid disorder [Unknown]
